FAERS Safety Report 4308812-X (Version None)
Quarter: 2004Q1

REPORT INFORMATION
  Report Type: 
  Country: None (occurrence: None)
  Receive Date: 20040301
  Receipt Date: 20040301
  Transmission Date: 20041129
  Serious: Yes (Hospitalization)
  Sender: FDA-Public Use
  Company Number: None

PATIENT
  Age: 90 Year
  Sex: Female

DRUGS (7)
  1. TEGRETOL [Suspect]
     Indication: CONVULSION PROPHYLAXIS
     Dosage: 300MG QAM,100 MG QPM, 400 MG QHS
     Dates: start: 19800901
  2. TEGRETOL [Suspect]
     Indication: TRIGEMINAL NEURALGIA
     Dosage: 300MG QAM,100 MG QPM, 400 MG QHS
     Dates: start: 19800901
  3. PLENDIL [Concomitant]
  4. THYROID TAB [Concomitant]
  5. ASPIRIN [Concomitant]
  6. ROBITUSSIN DM [Concomitant]
  7. FLU SHOT [Concomitant]

REACTIONS (1)
  - BALANCE DISORDER [None]
